FAERS Safety Report 12500440 (Version 2)
Quarter: 2016Q3

REPORT INFORMATION
  Report Type: Spontaneous
  Country: US (occurrence: US)
  Receive Date: 20160627
  Receipt Date: 20160901
  Transmission Date: 20161109
  Serious: No
  Sender: FDA-Public Use
  Company Number: US-PFIZER INC-2016316390

PATIENT
  Age: 66 Year
  Sex: Female

DRUGS (3)
  1. XELJANZ [Suspect]
     Active Substance: TOFACITINIB CITRATE
     Indication: ESSENTIAL HYPERTENSION
  2. XELJANZ [Suspect]
     Active Substance: TOFACITINIB CITRATE
     Indication: HYPOTHYROIDISM
  3. XELJANZ [Suspect]
     Active Substance: TOFACITINIB CITRATE
     Indication: RHEUMATOID ARTHRITIS
     Dosage: 5 MG, UNK
     Dates: start: 2016

REACTIONS (1)
  - Joint swelling [Unknown]

NARRATIVE: CASE EVENT DATE: 20160623
